FAERS Safety Report 8898693 (Version 2)
Quarter: 2012Q4

REPORT INFORMATION
  Report Type: Report from Study
  Country: US (occurrence: US)
  Receive Date: 20121109
  Receipt Date: 20121213
  Transmission Date: 20130627
  Serious: Yes (Death, Life-Threatening, Hospitalization)
  Sender: FDA-Public Use
  Company Number: US-TEVA-368662USA

PATIENT
  Age: 52 Year
  Sex: Female
  Weight: 65.9 kg

DRUGS (18)
  1. TREANDA [Suspect]
     Indication: SMALL CELL LUNG CANCER STAGE UNSPECIFIED
     Route: 042
     Dates: start: 20121029, end: 20121102
  2. IRINOTECAN [Suspect]
     Indication: SMALL CELL LUNG CANCER STAGE UNSPECIFIED
     Route: 042
     Dates: start: 20121029, end: 20121102
  3. DEXAMETHASONE [Concomitant]
     Indication: PROPHYLAXIS
     Dosage: 16 Milligram Daily;
     Route: 048
     Dates: start: 20121001, end: 20121031
  4. DEXAMETHASONE [Concomitant]
     Dosage: 2 Milligram Daily;
     Route: 048
     Dates: start: 20121031
  5. PROTONIX [Concomitant]
     Indication: PROPHYLAXIS
     Dosage: 40 Milligram Daily;
     Route: 048
     Dates: start: 20121001
  6. ZOFRAN [Concomitant]
     Indication: NAUSEA
     Route: 042
     Dates: start: 20121030, end: 20121030
  7. ZOFRAN [Concomitant]
     Indication: VOMITING
     Route: 048
     Dates: start: 20121029
  8. ALOXI [Concomitant]
     Indication: PROPHYLAXIS OF NAUSEA AND VOMITING
     Dosage: day 1 of each cycle
     Route: 042
     Dates: start: 20121029
  9. ALOXI [Concomitant]
     Dosage: day 1 of each cycle
     Route: 042
     Dates: start: 20121022, end: 20121022
  10. DECADRON [Concomitant]
     Indication: PROPHYLAXIS OF NAUSEA AND VOMITING
     Dosage: day 1 of each cycle
     Route: 042
     Dates: start: 20121029
  11. DECADRON [Concomitant]
     Dosage: day 1 of each cycle
     Route: 042
     Dates: start: 20121022, end: 20121022
  12. SALINE [Concomitant]
     Indication: NAUSEA
     Route: 042
     Dates: start: 20121022, end: 20121022
  13. SALINE [Concomitant]
     Indication: VOMITING
     Route: 042
     Dates: start: 20121030, end: 20121030
  14. ZOMETA [Concomitant]
     Indication: METASTASES TO BONE
     Dosage: .1333 Milligram Daily;
     Route: 042
     Dates: start: 20121018
  15. DOXYCYCLINE [Concomitant]
     Indication: UPPER RESPIRATORY TRACT INFECTION
     Dosage: 200 Milligram Daily;
     Route: 048
     Dates: start: 20121025, end: 20121101
  16. SPIRIVA [Concomitant]
     Indication: DYSPNOEA
     Dosage: 1 puff
     Route: 055
     Dates: start: 20120918
  17. ATIVAN [Concomitant]
     Indication: NAUSEA
     Route: 048
     Dates: start: 20121030
  18. ATIVAN [Concomitant]
     Indication: ANXIETY

REACTIONS (2)
  - Metabolic encephalopathy [Fatal]
  - Hyponatraemia [Fatal]
